FAERS Safety Report 7554453-0 (Version None)
Quarter: 2011Q2

REPORT INFORMATION
  Report Type: 
  Country: None (occurrence: None)
  Receive Date: 20110617
  Receipt Date: 20110614
  Transmission Date: 20111010
  Serious: Yes (Hospitalization)
  Sender: FDA-Public Use
  Company Number: A0920347A

PATIENT
  Age: 91 Year
  Sex: Male
  Weight: 67.3 kg

DRUGS (2)
  1. PREDNISONE [Concomitant]
     Route: 048
  2. PROMACTA [Suspect]
     Indication: IDIOPATHIC THROMBOCYTOPENIC PURPURA
     Dosage: 50MG PER DAY
     Route: 048
     Dates: start: 20090515

REACTIONS (5)
  - HAEMATURIA [None]
  - URETHRAL INJURY [None]
  - DIARRHOEA [None]
  - PLATELET COUNT DECREASED [None]
  - FAECAL INCONTINENCE [None]
